FAERS Safety Report 6704469-9 (Version None)
Quarter: 2010Q2

REPORT INFORMATION
  Report Type: 
  Country: None (occurrence: None)
  Receive Date: 20100430
  Receipt Date: 20100422
  Transmission Date: 20101027
  Serious: Yes (Death, Hospitalization)
  Sender: FDA-Public Use
  Company Number: GXKR2010US04491

PATIENT
  Age: 50 Year
  Sex: Male

DRUGS (2)
  1. LORAZEPAM [Suspect]
     Indication: GRAND MAL CONVULSION
     Dosage: 2 MG/MIN DURING 10 HOURS
     Route: 040
  2. PROPYLENE GLYCOL [Suspect]
     Dosage: 2 MG/MIN DURING 10 HOURS
     Route: 040

REACTIONS (3)
  - ACCIDENTAL OVERDOSE [None]
  - HAEMODIALYSIS [None]
  - LACTIC ACIDOSIS [None]
